FAERS Safety Report 20053559 (Version 1)
Quarter: 2021Q4

REPORT INFORMATION
  Report Type: Spontaneous
  Country: US (occurrence: None)
  Receive Date: 20211109
  Receipt Date: 20211109
  Transmission Date: 20220303
  Serious: No
  Sender: FDA-Public Use
  Company Number: None

PATIENT
  Age: 69 Year
  Sex: Male

DRUGS (1)
  1. HUMIRA [Suspect]
     Active Substance: ADALIMUMAB
     Indication: Arteritis
     Dosage: FREQUENCY : EVERY OTHER WEEK;?
     Route: 057
     Dates: start: 20210701

REACTIONS (2)
  - Seizure [None]
  - Vasculitis [None]

NARRATIVE: CASE EVENT DATE: 20210901
